FAERS Safety Report 8336832-7 (Version None)
Quarter: 2012Q2

REPORT INFORMATION
  Report Type: 
  Country: None (occurrence: None)
  Receive Date: 20120504
  Receipt Date: 20120430
  Transmission Date: 20120825
  Serious: Yes (Other)
  Sender: FDA-Public Use
  Company Number: VE-PFIZER INC-2012107814

PATIENT
  Sex: Female

DRUGS (1)
  1. LYRICA [Suspect]

REACTIONS (5)
  - KNEE OPERATION [None]
  - ASPHYXIA [None]
  - DIPLOPIA [None]
  - PANIC ATTACK [None]
  - SLEEP DISORDER [None]
